FAERS Safety Report 6367941-X (Version None)
Quarter: 2009Q3

REPORT INFORMATION
  Report Type: 
  Country: None (occurrence: None)
  Receive Date: 20090922
  Receipt Date: 20090313
  Transmission Date: 20100115
  Serious: No
  Sender: FDA-Public Use
  Company Number: A0767190A

PATIENT
  Age: 53 Year
  Sex: Female
  Weight: 91.4 kg

DRUGS (8)
  1. SEREVENT [Suspect]
     Indication: ASTHMA
     Dosage: 1PUFF TWICE PER DAY
     Route: 055
     Dates: start: 20020610
  2. LISINOPRIL AND HYDROCHLOROTHIAZIDE [Concomitant]
  3. ACIPHEX [Concomitant]
     Dosage: 20MG PER DAY
  4. PULMICORT-100 [Concomitant]
  5. PROAIR HFA [Concomitant]
  6. FLUOXETINE [Concomitant]
     Dosage: 20MG PER DAY
  7. WELLBUTRIN XL [Concomitant]
     Dosage: 300MG PER DAY
  8. FLUTICASONE [Concomitant]

REACTIONS (4)
  - DRUG INEFFECTIVE [None]
  - DYSPNOEA [None]
  - EXPIRED DRUG ADMINISTERED [None]
  - PRODUCT QUALITY ISSUE [None]
